FAERS Safety Report 13832300 (Version 3)
Quarter: 2018Q4

REPORT INFORMATION
  Report Type: Report from Study
  Country: US (occurrence: US)
  Receive Date: 20170804
  Receipt Date: 20181218
  Transmission Date: 20190204
  Serious: Yes (Other)
  Sender: FDA-Public Use
  Company Number: PHEH2017US023208

PATIENT
  Sex: Female

DRUGS (1)
  1. KISQALI FEMARA CO-PACK [Suspect]
     Active Substance: LETROZOLE\RIBOCICLIB
     Indication: BREAST CANCER STAGE IV
     Route: 065

REACTIONS (5)
  - Bone cancer [Unknown]
  - Clavicle fracture [Unknown]
  - Thrombosis [Unknown]
  - Lung neoplasm malignant [Unknown]
  - Rib fracture [Unknown]
